FAERS Safety Report 15160345 (Version 1)
Quarter: 2018Q3

REPORT INFORMATION
  Report Type: Report from Study
  Country: GB (occurrence: GB)
  Receive Date: 20180718
  Receipt Date: 20180718
  Transmission Date: 20181010
  Serious: Yes (Other)
  Sender: FDA-Public Use
  Company Number: GB-TEVA-2018-GB-924226

PATIENT
  Sex: Female

DRUGS (3)
  1. PARACETAMOL [Concomitant]
     Active Substance: ACETAMINOPHEN
     Route: 065
  2. COPAXONE [Suspect]
     Active Substance: GLATIRAMER ACETATE
     Indication: PRODUCT USED FOR UNKNOWN INDICATION
     Route: 058
     Dates: start: 20170628
  3. SERTRALINE [Concomitant]
     Active Substance: SERTRALINE HYDROCHLORIDE
     Dosage: 50 MILLIGRAM DAILY;
     Route: 065

REACTIONS (12)
  - Road traffic accident [Unknown]
  - Stress [Unknown]
  - Anxiety [Unknown]
  - Heat stroke [Unknown]
  - Gait disturbance [Unknown]
  - Speech disorder [Unknown]
  - Weight decreased [Unknown]
  - Wrong technique in product usage process [Unknown]
  - Tooth loss [Unknown]
  - Mobility decreased [Unknown]
  - Cognitive disorder [Unknown]
  - Product use issue [Unknown]
